FAERS Safety Report 9211067 (Version 1)
Quarter: 2013Q2

REPORT INFORMATION
  Report Type: Other
  Country: GB (occurrence: GB)
  Receive Date: 20130404
  Receipt Date: 20130404
  Transmission Date: 20140414
  Serious: Yes (Hospitalization)
  Sender: FDA-Public Use
  Company Number: GB-ACTAVIS-2013-06009

PATIENT
  Age: 55 Year
  Sex: Female

DRUGS (7)
  1. IBUPROFEN (UNKNOWN) [Suspect]
     Indication: ARTHRALGIA
     Dosage: 400 MG, TID
     Route: 048
     Dates: start: 200312, end: 200401
  2. TENOFOVIR [Suspect]
     Indication: PRODUCT USED FOR UNKNOWN INDICATION
     Dosage: 300 MG, DAILY
     Route: 048
     Dates: start: 200302, end: 200401
  3. BACTRIM [Concomitant]
     Indication: PRODUCT USED FOR UNKNOWN INDICATION
     Dosage: 960 MG, DAILY
     Route: 065
     Dates: end: 200401
  4. KALETRA [Concomitant]
     Indication: PRODUCT USED FOR UNKNOWN INDICATION
     Dosage: 3 BD
     Route: 065
     Dates: start: 200302, end: 200401
  5. ABACAVIR [Concomitant]
     Indication: PRODUCT USED FOR UNKNOWN INDICATION
     Dosage: 600 MG, DAILY
     Route: 065
     Dates: start: 200302, end: 200401
  6. ATENOLOL [Concomitant]
     Indication: PRODUCT USED FOR UNKNOWN INDICATION
     Dosage: 50 MG, DAILY
     Route: 065
  7. FLUCONAZOLE [Concomitant]
     Indication: PRODUCT USED FOR UNKNOWN INDICATION
     Dosage: 200 MG, DAILY
     Route: 065
     Dates: end: 200401

REACTIONS (3)
  - Renal tubular acidosis [Recovering/Resolving]
  - Metabolic acidosis [Recovering/Resolving]
  - Renal failure acute [Recovering/Resolving]
